FAERS Safety Report 9174729 (Version 1)
Quarter: 2013Q1

REPORT INFORMATION
  Report Type: Spontaneous
  Country: CA (occurrence: None)
  Receive Date: 20130318
  Receipt Date: 20130318
  Transmission Date: 20140127
  Serious: Yes (Other)
  Sender: FDA-Public Use
  Company Number: FK201300793

PATIENT
  Age: 10 Year
  Sex: Female
  Weight: 11.4 kg

DRUGS (5)
  1. VALPROATE [Suspect]
     Indication: CONVULSION
     Dosage: 62.5 MG  AM, 62.5 MG PM, 125 MG EVENING
  2. TOPIRAMATE (TOPIRAMATE) [Suspect]
     Indication: CONVULSION
     Dosage: 25 MG, AM, 12.5 MG PM, 25 MG, EVENING
  3. CARNITINE (CARNITINE) [Concomitant]
  4. LANSOPRAZOLE (LANSOPRAZOLE) [Concomitant]
  5. CALCIUM CARBONATE(CALCIUM CARBONATE) [Concomitant]

REACTIONS (5)
  - Rickets [None]
  - Nephrocalcinosis [None]
  - Fanconi syndrome [None]
  - Blood alkaline phosphatase increased [None]
  - Renal tubular acidosis [None]
